FAERS Safety Report 19634817 (Version 1)
Quarter: 2021Q3

REPORT INFORMATION
  Report Type: Spontaneous
  Country: ES (occurrence: ES)
  Receive Date: 20210730
  Receipt Date: 20210730
  Transmission Date: 20211014
  Serious: Yes (Disabling, Other)
  Sender: FDA-Public Use
  Company Number: ES-AUROBINDO-AUR-APL-2021-032038

PATIENT
  Age: 60 Year
  Sex: Female

DRUGS (3)
  1. CHOLECALCIFEROL [Concomitant]
     Active Substance: CHOLECALCIFEROL
     Indication: OSTEOPENIA
     Dosage: 800 INTERNATIONAL UNIT, ONCE A DAY
     Route: 065
  2. CALCIUM CARBONATE. [Concomitant]
     Active Substance: CALCIUM CARBONATE
     Indication: OSTEOPENIA
     Dosage: UNK
     Route: 065
  3. RISEDRONATE 75MG [Suspect]
     Active Substance: RISEDRONATE SODIUM
     Indication: OSTEOPENIA
     Dosage: UNK
     Route: 065

REACTIONS (5)
  - Dysmetria [Unknown]
  - Gait disturbance [Unknown]
  - Scoliosis [Unknown]
  - Sciatica [Unknown]
  - Atypical fracture [Unknown]
